FAERS Safety Report 5167562-0 (Version None)
Quarter: 2006Q4

REPORT INFORMATION
  Report Type: 
  Country: None (occurrence: None)
  Receive Date: 20060830
  Receipt Date: 20060520
  Transmission Date: 20070319
  Serious: No
  Sender: FDA-Public Use
  Company Number: 218170

PATIENT
  Age: 66 Year
  Sex: Female

DRUGS (10)
  1. XOLAIR [Suspect]
     Indication: ASTHMA
     Dosage: 375 MG, Q2W, SUBCUTANEOUS
     Route: 058
     Dates: start: 20031106, end: 20050814
  2. SPIRIVA [Concomitant]
  3. SYNTHROID [Concomitant]
  4. VENTOLIN (ALBUTEROL/ALBUTEROL SULFATE) [Concomitant]
  5. FOSAMAX [Concomitant]
  6. ASPIRIN [Concomitant]
  7. ADVAIR DISKUS 100/50 [Concomitant]
  8. THEOPHYLLINE [Concomitant]
  9. SINGULAIR [Concomitant]
  10. NORVASC [Concomitant]

REACTIONS (1)
  - BREAST CANCER [None]
